FAERS Safety Report 9418102 (Version 1)
Quarter: 2013Q3

REPORT INFORMATION
  Report Type: Report from Study
  Country: ES (occurrence: ES)
  Receive Date: 20130724
  Receipt Date: 20130724
  Transmission Date: 20140515
  Serious: Yes (Hospitalization)
  Sender: FDA-Public Use
  Company Number: ES-SANOFI-AVENTIS-2013SA072882

PATIENT
  Age: 63 Year
  Sex: Male
  Weight: 73 kg

DRUGS (4)
  1. TAXOTERE [Suspect]
     Indication: NON-SMALL CELL LUNG CANCER
     Route: 042
     Dates: start: 20110429, end: 20110429
  2. CISPLATIN [Suspect]
     Indication: NON-SMALL CELL LUNG CANCER
     Route: 042
     Dates: start: 20110429, end: 20110429
  3. HYDROCORTISONE [Concomitant]
     Indication: RENAL FAILURE
     Route: 048
  4. SALBUTAMOL [Concomitant]
     Indication: DYSPNOEA
     Route: 055

REACTIONS (7)
  - Anaemia [Recovered/Resolved]
  - Neutropenia [Recovered/Resolved]
  - Hypokalaemia [Recovered/Resolved]
  - Hypomagnesaemia [Recovered/Resolved]
  - Hyponatraemia [Recovered/Resolved]
  - Hypocalcaemia [Recovered/Resolved]
  - Respiratory tract infection [Recovered/Resolved]
